FAERS Safety Report 10167916 (Version 5)
Quarter: 2019Q1

REPORT INFORMATION
  Report Type: Spontaneous
  Country: US (occurrence: US)
  Receive Date: 20140512
  Receipt Date: 20190111
  Transmission Date: 20190417
  Serious: Yes (Other)
  Sender: FDA-Public Use
  Company Number: US-ASTRAZENECA-2013SE52063

PATIENT
  Age: 73 Year
  Sex: Female
  Weight: 53.1 kg

DRUGS (8)
  1. FASLODEX [Suspect]
     Active Substance: FULVESTRANT
     Route: 030
  2. LYNPARZA [Suspect]
     Active Substance: OLAPARIB
     Indication: BREAST CANCER
     Route: 048
     Dates: start: 20181027
  3. VITAMIN D3 [Concomitant]
     Active Substance: CHOLECALCIFEROL
  4. ZOFRAN [Concomitant]
     Active Substance: ONDANSETRON HYDROCHLORIDE
  5. REGLAN [Concomitant]
     Active Substance: METOCLOPRAMIDE HYDROCHLORIDE
  6. AFINITOR [Concomitant]
     Active Substance: EVEROLIMUS
  7. BENTYL [Concomitant]
     Active Substance: DICYCLOMINE HYDROCHLORIDE
  8. EXEDRIN [Concomitant]

REACTIONS (12)
  - Hypoaesthesia [Unknown]
  - Dysphagia [Unknown]
  - Yellow skin [Unknown]
  - Fatigue [Unknown]
  - Headache [Unknown]
  - Dizziness [Unknown]
  - Drug hypersensitivity [Unknown]
  - Sensation of foreign body [Unknown]
  - Arthralgia [Unknown]
  - Intestinal metastasis [Unknown]
  - Metastases to abdominal cavity [Unknown]
  - Dyspnoea [Unknown]
